FAERS Safety Report 20979211 (Version 6)
Quarter: 2023Q2

REPORT INFORMATION
  Report Type: Report from Study
  Country: US (occurrence: US)
  Receive Date: 20220620
  Receipt Date: 20230424
  Transmission Date: 20230722
  Serious: Yes (Hospitalization, Other)
  Sender: FDA-Public Use
  Company Number: US-ABBVIE-22K-163-4354162-00

PATIENT
  Sex: Female
  Weight: 69 kg

DRUGS (7)
  1. IMBRUVICA [Suspect]
     Active Substance: IBRUTINIB
     Indication: Chronic lymphocytic leukaemia
     Route: 048
     Dates: start: 201806
  2. JANSSEN COVID-19 VACCINE [Suspect]
     Active Substance: AD26.COV2.S
     Indication: COVID-19 immunisation
     Dosage: ONE IN ONCE
     Route: 030
  3. PHENERGAN [Concomitant]
     Active Substance: PROMETHAZINE HYDROCHLORIDE
     Indication: Product used for unknown indication
  4. POLYETHYLENE GLYCOL [Suspect]
     Active Substance: POLYETHYLENE GLYCOL
     Indication: Product used for unknown indication
     Route: 065
  5. MODERNA COVID-19 VACCINE [Suspect]
     Active Substance: ELASOMERAN
     Indication: COVID-19 immunisation
     Dosage: ONE IN ONCE
     Route: 030
  6. FLOVENT [Concomitant]
     Active Substance: FLUTICASONE PROPIONATE
     Indication: Product used for unknown indication
  7. DANAZOL [Concomitant]
     Active Substance: DANAZOL
     Indication: Product used for unknown indication

REACTIONS (52)
  - Femur fracture [Recovering/Resolving]
  - Constipation [Recovered/Resolved]
  - White blood cell count increased [Unknown]
  - Nail disorder [Recovering/Resolving]
  - Red blood cell count increased [Unknown]
  - Swelling [Recovered/Resolved]
  - Haemoptysis [Unknown]
  - Hip fracture [Recovering/Resolving]
  - Bladder spasm [Not Recovered/Not Resolved]
  - Immunisation [Unknown]
  - Heart rate increased [Recovered/Resolved]
  - Wheezing [Recovered/Resolved]
  - Drug hypersensitivity [Unknown]
  - Peripheral swelling [Recovered/Resolved]
  - Skin atrophy [Recovering/Resolving]
  - Nausea [Recovered/Resolved]
  - Amnesia [Unknown]
  - Amnesia [Not Recovered/Not Resolved]
  - Lymphadenopathy [Unknown]
  - Muscle spasms [Recovering/Resolving]
  - Vomiting [Unknown]
  - Eye pain [Unknown]
  - Fall [Recovered/Resolved]
  - Atelectasis [Unknown]
  - Hypertension [Recovered/Resolved]
  - Loss of bladder sensation [Not Recovered/Not Resolved]
  - Cataract [Unknown]
  - Skin fissures [Unknown]
  - Onychoclasis [Unknown]
  - Lung disorder [Recovered/Resolved]
  - Abdominal discomfort [Unknown]
  - Autoimmune disorder [Unknown]
  - Adverse drug reaction [Unknown]
  - Nerve injury [Not Recovered/Not Resolved]
  - Fluid retention [Unknown]
  - Alopecia [Recovering/Resolving]
  - Urinary incontinence [Recovering/Resolving]
  - Asthma [Unknown]
  - Hypersensitivity [Recovered/Resolved]
  - Abdominal pain upper [Recovered/Resolved]
  - Respiratory distress [Recovered/Resolved]
  - Bone pain [Unknown]
  - Phlebitis [Unknown]
  - Immunodeficiency [Unknown]
  - Learning disorder [Unknown]
  - Fall [Recovered/Resolved]
  - Emotional disorder [Unknown]
  - Mental impairment [Unknown]
  - Mobility decreased [Recovering/Resolving]
  - Diarrhoea [Unknown]
  - Dyspnoea [Recovered/Resolved]
  - Rhinorrhoea [Unknown]

NARRATIVE: CASE EVENT DATE: 20190101
